FAERS Safety Report 9596174 (Version 1)
Quarter: 2013Q4

REPORT INFORMATION
  Report Type: Report from Study
  Country: CA (occurrence: CA)
  Receive Date: 20131004
  Receipt Date: 20131004
  Transmission Date: 20140711
  Serious: Yes (Other)
  Sender: FDA-Public Use
  Company Number: CA-JNJFOC-20130917660

PATIENT
  Sex: Female
  Weight: 48.44 kg

DRUGS (2)
  1. REMICADE [Suspect]
     Indication: RHEUMATOID ARTHRITIS
     Route: 042
     Dates: start: 2006
  2. REMICADE [Suspect]
     Indication: RHEUMATOID ARTHRITIS
     Route: 042

REACTIONS (6)
  - Psoriasis [Unknown]
  - Hypertonic bladder [Not Recovered/Not Resolved]
  - Scoliosis [Unknown]
  - Arthralgia [Not Recovered/Not Resolved]
  - Regressive behaviour [Unknown]
  - Weight decreased [Unknown]
